FAERS Safety Report 4667645-5 (Version None)
Quarter: 2005Q2

REPORT INFORMATION
  Report Type: 
  Country: None (occurrence: None)
  Receive Date: 20050520
  Receipt Date: 20050415
  Transmission Date: 20051028
  Serious: Yes (Hospitalization, Other)
  Sender: FDA-Public Use
  Company Number: PHEH2005US04406

PATIENT
  Age: 74 Year
  Sex: Female

DRUGS (20)
  1. TRICOR [Concomitant]
  2. AREDIA [Suspect]
     Indication: METASTASES TO BONE
     Dosage: 90MG Q2MO
     Dates: end: 20040505
  3. AREDIA [Suspect]
     Dosage: UNK, UNK
     Dates: start: 19991001, end: 20040505
  4. VICODIN [Concomitant]
     Indication: PAIN
     Dosage: 5MG 1-2 TABS Q4H PRN
  5. ASPIRIN [Concomitant]
     Indication: PROPHYLAXIS
     Dosage: 325 MG, QD
  6. NIASPAN [Concomitant]
     Dosage: 1000 MG, QD
  7. FOSAMAX [Concomitant]
     Indication: OSTEOPOROSIS
     Dosage: 70 MG, QW
  8. FLONASE [Concomitant]
     Indication: SINUS CONGESTION
     Dosage: UNK, PRN
  9. ATROVENT [Concomitant]
     Indication: SINUS CONGESTION
     Dosage: UNK, PRN
  10. VITAMIN E [Concomitant]
  11. VIT C TAB [Concomitant]
  12. VITAMIN B12 NOS W/VITAMIN B6 [Concomitant]
  13. VITAMIN A AND D [Concomitant]
  14. FOLIC ACID [Concomitant]
  15. DIOVAN HCT [Concomitant]
     Indication: HYPERTENSION
     Dosage: 1 CAPSULE QD
  16. SYNTHROID [Concomitant]
     Indication: HYPOTHYROIDISM
     Dosage: 25 MCG QD
  17. TAMOXIFEN CITRATE [Concomitant]
     Indication: BREAST CANCER
     Dosage: 10 MG, BID
     Dates: start: 19990901
  18. METHOTREXATE [Concomitant]
     Indication: ARTHRITIS
     Dosage: 2.5MG (7) TABS QWK
  19. ALPRAZOLAM [Concomitant]
     Indication: ANXIETY
     Dosage: UNK MG, PRN
  20. VERELAN [Concomitant]

REACTIONS (24)
  - ACTINOMYCOSIS [None]
  - ASEPTIC NECROSIS BONE [None]
  - BLOOD CREATININE INCREASED [None]
  - BONE DEBRIDEMENT [None]
  - BONE DISORDER [None]
  - CREPITATIONS [None]
  - DENTAL CARIES [None]
  - ENDODONTIC PROCEDURE [None]
  - GINGIVITIS [None]
  - HAEMOGLOBIN DECREASED [None]
  - HYPERBARIC OXYGEN THERAPY [None]
  - JAW DISORDER [None]
  - LYMPHOEDEMA [None]
  - NASAL CONGESTION [None]
  - OEDEMA PERIPHERAL [None]
  - OSTEOMYELITIS [None]
  - OSTEONECROSIS [None]
  - POST PROCEDURAL PAIN [None]
  - RENAL FAILURE CHRONIC [None]
  - SINUS OPERATION [None]
  - SINUSITIS [None]
  - SWELLING [None]
  - TOOTH ABSCESS [None]
  - TOOTH EXTRACTION [None]
